FAERS Safety Report 25476315 (Version 1)
Quarter: 2025Q2

REPORT INFORMATION
  Report Type: Spontaneous
  Country: GB (occurrence: GB)
  Receive Date: 20250625
  Receipt Date: 20250625
  Transmission Date: 20250717
  Serious: Yes (Other)
  Sender: AMGEN
  Company Number: GB-AMGEN-GBRSP2025121494

PATIENT
  Sex: Female

DRUGS (1)
  1. ARANESP [Suspect]
     Active Substance: DARBEPOETIN ALFA
     Indication: Ectopic kidney
     Dosage: 15 MICROGRAM, QWK (20MCG/0.5MI)
     Route: 040

REACTIONS (2)
  - Transplant [Unknown]
  - Off label use [Unknown]
